FAERS Safety Report 4510182-9 (Version None)
Quarter: 2004Q4

REPORT INFORMATION
  Report Type: 
  Country: None (occurrence: None)
  Receive Date: 20041124
  Receipt Date: 20021218
  Transmission Date: 20050328
  Serious: Yes (Death, Life-Threatening, Hospitalization, Disabling)
  Sender: FDA-Public Use
  Company Number: US-MERCK-0212USA01747

PATIENT
  Age: 79 Year
  Sex: Male

DRUGS (2)
  1. ZOCOR [Suspect]
     Indication: BLOOD CHOLESTEROL INCREASED
     Route: 048
     Dates: start: 20020201, end: 20020601
  2. ZOCOR [Suspect]
     Route: 048
     Dates: start: 20020101, end: 20021108

REACTIONS (7)
  - ASTHENIA [None]
  - CARCINOMA [None]
  - HEPATIC FUNCTION ABNORMAL [None]
  - MUSCLE ATROPHY [None]
  - MUSCULAR WEAKNESS [None]
  - RENAL IMPAIRMENT [None]
  - ULCER HAEMORRHAGE [None]
